FAERS Safety Report 4994241-2 (Version None)
Quarter: 2006Q2

REPORT INFORMATION
  Report Type: 
  Country: None (occurrence: None)
  Receive Date: 20060505
  Receipt Date: 20060425
  Transmission Date: 20061013
  Serious: Yes (Congenital Anomaly)
  Sender: FDA-Public Use
  Company Number: US-JNJFOC-20060406222

PATIENT
  Sex: Female
  Weight: 3.18 kg

DRUGS (3)
  1. TOPAMAX [Suspect]
  2. MACROBID [Suspect]
  3. MACROBID [Suspect]

REACTIONS (1)
  - GASTROINTESTINAL OBSTRUCTION [None]
